FAERS Safety Report 8592479-9 (Version None)
Quarter: 2012Q3

REPORT INFORMATION
  Report Type: 
  Country: None (occurrence: None)
  Receive Date: 20120814
  Receipt Date: 20120807
  Transmission Date: 20120928
  Serious: Yes (Hospitalization, Other)
  Sender: FDA-Public Use
  Company Number: JP-VERTEX PHARMACEUTICALS INC.-AE-2012-003273

PATIENT
  Age: 63 Year
  Sex: Male

DRUGS (20)
  1. REBETOL [Concomitant]
     Indication: HEPATITIS C
     Route: 048
     Dates: start: 20120207, end: 20120306
  2. REBETOL [Concomitant]
     Route: 048
     Dates: end: 20120328
  3. PEG-INTRON [Concomitant]
     Route: 058
  4. FAMOTIDINE [Concomitant]
     Route: 048
  5. REBETOL [Concomitant]
     Route: 048
     Dates: start: 20120307, end: 20120309
  6. REBETOL [Concomitant]
     Route: 048
     Dates: start: 20120310
  7. PAXIL [Concomitant]
     Route: 048
  8. TELAVIC [Suspect]
     Indication: HEPATITIS C
     Route: 048
     Dates: start: 20120207, end: 20120307
  9. REBETOL [Concomitant]
     Route: 048
     Dates: start: 20120612
  10. REBETOL [Concomitant]
     Route: 048
     Dates: start: 20120424, end: 20120430
  11. CONIEL [Concomitant]
     Route: 048
  12. REBETOL [Concomitant]
     Route: 048
     Dates: start: 20120626
  13. SEDEKOPAN [Concomitant]
     Route: 048
     Dates: start: 20120309
  14. TELAVIC [Suspect]
     Route: 048
     Dates: start: 20120308, end: 20120324
  15. REBETOL [Concomitant]
     Route: 048
     Dates: start: 20120329, end: 20120423
  16. REBETOL [Concomitant]
     Route: 046
     Dates: start: 20120529
  17. REBETOL [Concomitant]
     Route: 048
     Dates: start: 20120501
  18. TELAVIC [Suspect]
     Route: 048
     Dates: start: 20120417, end: 20120430
  19. PEG-INTRON [Concomitant]
     Indication: HEPATITIS C
     Route: 058
     Dates: start: 20120207
  20. PEG-INTRON [Concomitant]
     Route: 058

REACTIONS (4)
  - SYNCOPE [None]
  - DECREASED APPETITE [None]
  - RENAL DISORDER [None]
  - ANAEMIA [None]
